FAERS Safety Report 8638652 (Version 5)
Quarter: 2012Q4

REPORT INFORMATION
  Report Type: Report from Study
  Country: CA (occurrence: CA)
  Receive Date: 20120627
  Receipt Date: 20121026
  Transmission Date: 20130627
  Serious: Yes (Other)
  Sender: FDA-Public Use
  Company Number: CA-JNJFOC-20120612585

PATIENT
  Age: 61 None
  Sex: Female

DRUGS (1)
  1. SIMPONI [Suspect]
     Indication: ANKYLOSING SPONDYLITIS
     Route: 058
     Dates: start: 20120531

REACTIONS (4)
  - Cystitis [Unknown]
  - Bladder operation [Unknown]
  - Urinary tract infection [Unknown]
  - Lower respiratory tract infection [Unknown]
